FAERS Safety Report 6338037-8 (Version None)
Quarter: 2009Q3

REPORT INFORMATION
  Report Type: 
  Country: None (occurrence: None)
  Receive Date: 20090902
  Receipt Date: 20090821
  Transmission Date: 20100115
  Serious: Yes (Other)
  Sender: FDA-Public Use
  Company Number: IE-NAPPMUNDI-DEU-2009-0005489

PATIENT
  Age: 37 Year
  Sex: Female

DRUGS (3)
  1. MORPHINE SULFATE [Suspect]
     Indication: BACK PAIN
     Dosage: 18 MG, DAILY
  2. MORPHINE SULFATE [Suspect]
     Dosage: 2 MG, DAILY
     Route: 037
  3. HYDROMORPHONE HCL [Suspect]
     Indication: BACK PAIN
     Route: 037

REACTIONS (2)
  - AMENORRHOEA [None]
  - ARTHRALGIA [None]
